FAERS Safety Report 4521175-X (Version None)
Quarter: 2004Q4

REPORT INFORMATION
  Report Type: 
  Country: None (occurrence: None)
  Receive Date: 20041208
  Receipt Date: 20041126
  Transmission Date: 20050328
  Serious: Yes (Life-Threatening, Hospitalization)
  Sender: FDA-Public Use
  Company Number: FR-BRISTOL-MYERS SQUIBB COMPANY-12783361

PATIENT
  Age: 47 Year
  Sex: Male

DRUGS (3)
  1. ERBITUX [Suspect]
     Indication: COLORECTAL CANCER
     Dosage: REC'D 250 MG/M2
     Route: 042
     Dates: start: 20040316, end: 20040824
  2. CAMPTOSAR [Suspect]
     Indication: COLORECTAL CANCER
     Route: 042
     Dates: start: 20040316, end: 20040824
  3. ELOXATIN [Suspect]
     Indication: DRUG USE FOR UNKNOWN INDICATION
     Route: 042
     Dates: start: 20010515, end: 20040102

REACTIONS (6)
  - ASCITES [None]
  - HAEMATEMESIS [None]
  - HEPATIC VEIN THROMBOSIS [None]
  - OESOPHAGEAL VARICES HAEMORRHAGE [None]
  - PORTAL HYPERTENSION [None]
  - VENOOCCLUSIVE LIVER DISEASE [None]
